FAERS Safety Report 13276475 (Version 2)
Quarter: 2017Q2

REPORT INFORMATION
  Report Type: Spontaneous
  Country: US (occurrence: US)
  Receive Date: 20170228
  Receipt Date: 20170620
  Transmission Date: 20170830
  Serious: No
  Sender: FDA-Public Use
  Company Number: US-ELI_LILLY_AND_COMPANY-US201702008643

PATIENT
  Age: 47 Year
  Sex: Male

DRUGS (5)
  1. ATENOLOL. [Concomitant]
     Active Substance: ATENOLOL
     Dosage: 50 MG, DAILY
     Route: 048
  2. CLOBEX                             /00337102/ [Concomitant]
     Dosage: UNK %, UNK
  3. PRAVASTATIN. [Concomitant]
     Active Substance: PRAVASTATIN
  4. TALTZ [Suspect]
     Active Substance: IXEKIZUMAB
     Indication: PSORIASIS
     Dosage: 160 MG, LOADING DOSE
     Route: 058
     Dates: start: 20170211, end: 20170211
  5. PROPECIA [Concomitant]
     Active Substance: FINASTERIDE
     Dosage: 1 MG, DAILY
     Route: 048

REACTIONS (4)
  - Serum sickness [Recovering/Resolving]
  - Arthralgia [Unknown]
  - Peripheral swelling [Unknown]
  - Injection site reaction [Unknown]

NARRATIVE: CASE EVENT DATE: 201702
